FAERS Safety Report 7747494-1 (Version None)
Quarter: 2011Q3

REPORT INFORMATION
  Report Type: 
  Country: None (occurrence: None)
  Receive Date: 20110913
  Receipt Date: 20110904
  Transmission Date: 20111222
  Serious: Yes (Hospitalization)
  Sender: FDA-Public Use
  Company Number: KR-ELI_LILLY_AND_COMPANY-KR201109001334

PATIENT
  Sex: Male
  Weight: 62 kg

DRUGS (6)
  1. GEMCITABINE HYDROCHLORIDE [Suspect]
     Indication: NON-SMALL CELL LUNG CANCER
     Dosage: 2125 MG, OTHER
     Dates: start: 20110617
  2. PANTOLOC                           /01263202/ [Concomitant]
  3. CISPLATIN [Suspect]
     Indication: NON-SMALL CELL LUNG CANCER
     Dosage: 127 MG, OTHER
     Dates: start: 20110617
  4. ALMAGEL [Concomitant]
  5. NECITUMUMAB (11F8) (LY3012211) [Suspect]
     Indication: NON-SMALL CELL LUNG CANCER
     Dosage: 800 MG, UNK
     Dates: start: 20110617
  6. MEGACE [Concomitant]

REACTIONS (1)
  - HAEMORRHAGE [None]
